FAERS Safety Report 11047393 (Version 2)
Quarter: 2015Q2

REPORT INFORMATION
  Report Type: Spontaneous
  Country: US (occurrence: US)
  Receive Date: 20150420
  Receipt Date: 20150515
  Transmission Date: 20150821
  Serious: No
  Sender: FDA-Public Use
  Company Number: US-BIOGENIDEC-2015BI032918

PATIENT
  Sex: Female

DRUGS (1)
  1. TYSABRI [Suspect]
     Active Substance: NATALIZUMAB
     Indication: MULTIPLE SCLEROSIS
     Route: 042
     Dates: start: 20090610

REACTIONS (10)
  - Fatigue [Not Recovered/Not Resolved]
  - Central nervous system lesion [Not Recovered/Not Resolved]
  - Multiple sclerosis [Not Recovered/Not Resolved]
  - Asthenia [Not Recovered/Not Resolved]
  - Balance disorder [Not Recovered/Not Resolved]
  - Fall [Not Recovered/Not Resolved]
  - Hypertension [Not Recovered/Not Resolved]
  - Memory impairment [Not Recovered/Not Resolved]
  - Drug dose omission [Recovered/Resolved]
  - Gait disturbance [Not Recovered/Not Resolved]
